FAERS Safety Report 18474302 (Version 1)
Quarter: 2020Q4

REPORT INFORMATION
  Report Type: Spontaneous
  Country: KR (occurrence: KR)
  Receive Date: 20201106
  Receipt Date: 20201106
  Transmission Date: 20210114
  Serious: Yes (Other)
  Sender: FDA-Public Use
  Company Number: NVSC2020KR294151

PATIENT
  Age: 70 Year
  Sex: Female

DRUGS (8)
  1. MIRTAX [MIRTAZAPINE] [Suspect]
     Active Substance: MIRTAZAPINE
     Indication: PRODUCT USED FOR UNKNOWN INDICATION
     Dosage: UNK
     Route: 065
     Dates: start: 20190708
  2. ABILIFY [Concomitant]
     Active Substance: ARIPIPRAZOLE
     Indication: PRODUCT USED FOR UNKNOWN INDICATION
     Dosage: UNK
     Route: 065
     Dates: start: 20190708, end: 20190723
  3. STILNOX [Concomitant]
     Active Substance: ZOLPIDEM TARTRATE
     Indication: PRODUCT USED FOR UNKNOWN INDICATION
     Dosage: 1.5 DF
     Route: 065
     Dates: start: 20190727
  4. CLOGREL [Concomitant]
     Indication: PRODUCT USED FOR UNKNOWN INDICATION
     Dosage: UNK
     Route: 065
     Dates: start: 20190715
  5. GLIATILIN [Concomitant]
     Active Substance: CHOLINE ALFOSCERATE
     Indication: PRODUCT USED FOR UNKNOWN INDICATION
     Dosage: UNK
     Route: 065
     Dates: start: 20190715
  6. ALPRAM [Concomitant]
     Active Substance: ALPRAZOLAM
     Indication: PRODUCT USED FOR UNKNOWN INDICATION
     Dosage: UNK
     Route: 065
     Dates: start: 20190708
  7. EXELON [Suspect]
     Active Substance: RIVASTIGMINE TARTRATE
     Indication: PRODUCT USED FOR UNKNOWN INDICATION
     Dosage: UNK
     Route: 065
  8. RIVOTRIL [Concomitant]
     Active Substance: CLONAZEPAM
     Indication: PRODUCT USED FOR UNKNOWN INDICATION
     Dosage: UNK
     Route: 065
     Dates: start: 20190715, end: 20190723

REACTIONS (12)
  - Memory impairment [Unknown]
  - Persecutory delusion [Unknown]
  - Aggression [Unknown]
  - Dementia with Lewy bodies [Unknown]
  - Condition aggravated [Unknown]
  - Hallucination [Unknown]
  - Cognitive disorder [Unknown]
  - Creutzfeldt-Jakob disease [Unknown]
  - Dementia Alzheimer^s type [Unknown]
  - Cough [Unknown]
  - Depressed level of consciousness [Unknown]
  - Anxiety [Unknown]

NARRATIVE: CASE EVENT DATE: 20190727
